FAERS Safety Report 22140304 (Version 1)
Quarter: 2023Q1

REPORT INFORMATION
  Report Type: Spontaneous
  Country: US (occurrence: None)
  Receive Date: 20230327
  Receipt Date: 20230327
  Transmission Date: 20230418
  Serious: Yes (Other)
  Sender: FDA-Public Use
  Company Number: US-BROWN + BURK(UK) LIMITED-ML2023-01634

PATIENT
  Age: 80 Year
  Sex: Male

DRUGS (11)
  1. CLINDAMYCIN [Suspect]
     Active Substance: CLINDAMYCIN
     Indication: Babesiosis
     Dosage: DAY 74
  2. CLINDAMYCIN [Suspect]
     Active Substance: CLINDAMYCIN
     Dosage: RESUMED ON DAY 148
  3. CLINDAMYCIN [Suspect]
     Active Substance: CLINDAMYCIN
     Dosage: ON DAY 227
  4. ATOVAQUONE [Suspect]
     Active Substance: ATOVAQUONE
     Indication: Babesiosis
  5. ATOVAQUONE [Suspect]
     Active Substance: ATOVAQUONE
     Dosage: DAY 110
  6. ATOVAQUONE [Suspect]
     Active Substance: ATOVAQUONE
     Dosage: ON DAY 227
  7. AZITHROMYCIN [Suspect]
     Active Substance: AZITHROMYCIN
     Indication: Babesiosis
  8. AZITHROMYCIN [Suspect]
     Active Substance: AZITHROMYCIN
     Dosage: DAY 110
  9. AZITHROMYCIN [Suspect]
     Active Substance: AZITHROMYCIN
     Dosage: DAY 227
  10. QUININE [Suspect]
     Active Substance: QUININE
     Indication: Babesiosis
     Dosage: DAY 74
  11. QUININE [Suspect]
     Active Substance: QUININE
     Dosage: RESUMED ON DAY 208

REACTIONS (5)
  - Deafness [Unknown]
  - Drug resistance [Unknown]
  - Nausea [Unknown]
  - Vomiting [Unknown]
  - Diarrhoea [Unknown]
